FAERS Safety Report 5710081-0 (Version None)
Quarter: 2008Q2

REPORT INFORMATION
  Report Type: 
  Country: None (occurrence: None)
  Receive Date: 20080418
  Receipt Date: 20071003
  Transmission Date: 20081010
  Serious: No
  Sender: FDA-Public Use
  Company Number: US-ASTRAZENECA-2007UW23259

PATIENT
  Sex: Female

DRUGS (1)
  1. TOPROL-XL [Suspect]
     Route: 048
     Dates: start: 20070101, end: 20070101

REACTIONS (4)
  - ANXIETY [None]
  - INSOMNIA [None]
  - MENTAL DISORDER [None]
  - PALPITATIONS [None]
